FAERS Safety Report 4722068-5 (Version None)
Quarter: 2005Q3

REPORT INFORMATION
  Report Type: 
  Country: None (occurrence: None)
  Receive Date: 20050720
  Receipt Date: 20050707
  Transmission Date: 20060218
  Serious: Yes (Hospitalization)
  Sender: FDA-Public Use
  Company Number: 192514

PATIENT
  Age: 37 Year
  Sex: Female

DRUGS (1)
  1. AVONEX [Suspect]
     Indication: MULTIPLE SCLEROSIS
     Dosage: IM
     Route: 030
     Dates: start: 19971101

REACTIONS (5)
  - APHASIA [None]
  - DYSPHAGIA [None]
  - INCOHERENT [None]
  - MULTIPLE SCLEROSIS [None]
  - NERVOUS SYSTEM DISORDER [None]
